FAERS Safety Report 9357466 (Version 7)
Quarter: 2013Q4

REPORT INFORMATION
  Report Type: Spontaneous
  Country: FR (occurrence: None)
  Receive Date: 20130617
  Receipt Date: 20131003
  Transmission Date: 20140711
  Serious: Yes (Hospitalization)
  Sender: FDA-Public Use
  Company Number: SYM-2013-04725

PATIENT
  Age: 53 Year
  Sex: Female

DRUGS (30)
  1. 5 FU [Suspect]
     Indication: COLORECTAL CANCER METASTATIC
     Route: 040
     Dates: start: 20130114, end: 20130114
  2. IRINOTECAN [Suspect]
     Indication: COLORECTAL CANCER METASTATIC
     Route: 041
     Dates: start: 20130114, end: 20130114
  3. LEUCOVORIN [Suspect]
     Indication: COLORECTAL CANCER METASTATIC
     Route: 041
     Dates: start: 20130114, end: 20130114
  4. AFLIBERCEPT [Suspect]
     Indication: COLORECTAL CANCER METASTATIC
     Route: 041
     Dates: start: 20130114, end: 20130114
  5. MOVICOL [Concomitant]
  6. ZOPHREN (ONDANSETRON HYDROCHLORIDE)(ONDANSETRON HYDROCHLORIDE) [Concomitant]
  7. OMEPRAZOLE (OMEPRAZOLE)(OMEPRAZOLE) [Concomitant]
  8. EMEND (APREPITANT)(APREPITANT) [Concomitant]
  9. IXPRIM (ULTRACET)(PARACETAMOL, TRAMADOL HYDROCHLORIDE) [Concomitant]
  10. INEXIUM (ESOMEPRAZOLE MAGNESIUM)(ESOMEPRAZOLE MAGNESIUM) [Concomitant]
  11. CALCIUM CHANNEL BLOCKERS(CALCIUM CHANNEL BLOCKERS) [Concomitant]
  12. DOLIPRANE(PARACETAMOL)(PARACETAMOL) [Concomitant]
  13. LYRICA(PREGABALIN)(PREGABALIN) [Concomitant]
  14. VERSATIS (LIDOCAINE)(LIDOCAINE) [Concomitant]
  15. TRIATEC(RAMIPRIL)(RAMIPRIL) [Concomitant]
  16. ANTIFUNGALS(ANTIFUNGALS FOR DERMATOLOGICAL USE)(NULL) [Concomitant]
  17. PHOSPHONEUROS(PHOSPHONEUROS)(MAGNESIUM GLYCEROPHOSPHATE, SODIUM PHOSPHATE DIBASIC, PHOSPHORIC ACID, CALCIUM PHOSPHATE DIBASIC) [Concomitant]
  18. LANSOYL(PARAFFIN, LIQUID)(PARAFFIN, LIQUID) [Concomitant]
  19. EUPANTOL(PANTOPRAZOLE SODIUM SESQUIHYDRATE)(PANTOPRAZOLE SODIUM SESQUIHYDRATE) [Concomitant]
  20. HEPARIN GROUP(HEPARIN GROUP) [Concomitant]
  21. FUNGIZONE(AMPHOTERICIN B)(AMPHOTERICIN B) [Concomitant]
  22. BIAFINE(BIAFINE /00834001/)(PROPYLENE GLYCOL, TROLAMINE, ETHYLENE GLYCOL MONOSTEARATE, STEARYL ALCOHOL, CETYL PALMITATE, PARAFFIN, PARAFFIN, LIQUID, SODIUM ALGINATE) [Concomitant]
  23. METHYLPREDNISOLONE(METHYLPREDNISOLONE)(METHYLPREDNISOLONE) [Concomitant]
  24. SOLUTIONS FOR PARENTERAL NUTRITION(SOLUTIONS FOR PARENTERAL NUTRITION) [Concomitant]
  25. VOGALENE(METOPIMAZINE)(METOPIMAZINE) [Concomitant]
  26. PRIMPERAN(METOCLOPRAMIDE HYDROCHLORIDE)(METOCLOPRAMIDE HYDROCHLORIDE) [Concomitant]
  27. ALDACTAZINE(ALDACTAZINE)(SPIRONOLACTONE, ALTIZIDE) [Concomitant]
  28. BALM/MAGNESIUM/OMEGA 3 FATTY ACIDS/SELENIUM/VITAMIN B6/ VITAMIN E/ZINC(OTHER THERAPEUTIC PRODUCTS)(NULL) [Concomitant]
  29. ANTIHISTAMINES(ANTIHISTAMINES) [Concomitant]
  30. LOVENOX(ENOXAPARIN SODIUM)(ENOXAPARIN SODIUM) [Concomitant]

REACTIONS (18)
  - General physical health deterioration [None]
  - Vomiting [None]
  - Nausea [None]
  - Decreased appetite [None]
  - Dehydration [None]
  - Condition aggravated [None]
  - Liver disorder [None]
  - Ovarian mass [None]
  - Pulmonary mass [None]
  - Ascites [None]
  - Malignant neoplasm progression [None]
  - Peritoneal disorder [None]
  - Diarrhoea [None]
  - Asthenia [None]
  - Fungal infection [None]
  - Haemoglobin decreased [None]
  - Gamma-glutamyltransferase increased [None]
  - Blood alkaline phosphatase increased [None]
